FAERS Safety Report 4402389-6 (Version None)
Quarter: 2004Q3

REPORT INFORMATION
  Report Type: 
  Country: None (occurrence: None)
  Receive Date: 20040712
  Receipt Date: 20040628
  Transmission Date: 20050211
  Serious: Yes (Hospitalization)
  Sender: FDA-Public Use
  Company Number: M2004-014

PATIENT
  Age: 56 Year
  Sex: Male

DRUGS (3)
  1. FRESNO MOLD #6 [Suspect]
     Indication: MYCOTIC ALLERGY
     Dosage: 0.25 ML WEEKLY INJ
     Dates: start: 20040101
  2. CAT PELT [Suspect]
     Indication: ALLERGY TO ANIMAL
     Dosage: 0.07 ML WEEKLY INJ
     Dates: start: 20040101
  3. JH TGW MIX [Suspect]
     Indication: SEASONAL ALLERGY
     Dosage: 0.25 ML WEEKLY INJ
     Dates: start: 20040101

REACTIONS (5)
  - CONDITION AGGRAVATED [None]
  - DYSPHAGIA [None]
  - DYSPNOEA [None]
  - SEASONAL ALLERGY [None]
  - WHEEZING [None]
